FAERS Safety Report 8058539-6 (Version None)
Quarter: 2012Q1

REPORT INFORMATION
  Report Type: 
  Country: None (occurrence: None)
  Receive Date: 20120120
  Receipt Date: 20120110
  Transmission Date: 20120608
  Serious: Yes (Hospitalization, Disabling, Other)
  Sender: FDA-Public Use
  Company Number: FR-SANOFI-AVENTIS-2011SA081385

PATIENT
  Age: 38 Year
  Sex: Female
  Weight: 88 kg

DRUGS (5)
  1. FENOFIBRATE [Concomitant]
     Route: 048
     Dates: start: 20111201
  2. IMURAN [Concomitant]
     Indication: AUTOIMMUNE HEPATITIS
     Dosage: DOSE:1 UNIT(S)
     Route: 048
     Dates: end: 20110701
  3. LANTUS [Suspect]
     Route: 058
     Dates: start: 20100329
  4. RAMIPRIL [Concomitant]
     Route: 048
     Dates: start: 20091201
  5. DELURSAN [Concomitant]
     Indication: AUTOIMMUNE HEPATITIS
     Route: 048
     Dates: start: 20070101

REACTIONS (2)
  - BREAST CANCER [None]
  - METASTASES TO BONE [None]
